FAERS Safety Report 9417938 (Version 1)
Quarter: 2013Q3

REPORT INFORMATION
  Report Type: Spontaneous
  Country: US (occurrence: US)
  Receive Date: 20130724
  Receipt Date: 20130724
  Transmission Date: 20140515
  Serious: No
  Sender: FDA-Public Use
  Company Number: US-BAUSCH-BL-2012-001170

PATIENT
  Sex: Male

DRUGS (2)
  1. OPCON-A [Suspect]
     Indication: OCULAR HYPERAEMIA
     Dosage: TWO DROPS IN EACH EYE AS NEEDED
     Route: 047
     Dates: start: 201209
  2. PARACETAMOL [Concomitant]
     Indication: HEADACHE

REACTIONS (1)
  - Tinnitus [Not Recovered/Not Resolved]
